FAERS Safety Report 4982316-3 (Version None)
Quarter: 2006Q2

REPORT INFORMATION
  Report Type: 
  Country: None (occurrence: None)
  Receive Date: 20060425
  Receipt Date: 20051115
  Transmission Date: 20061013
  Serious: Yes (Other)
  Sender: FDA-Public Use
  Company Number: 2006UW01535

PATIENT

DRUGS (1)
  1. NEXIUM [Suspect]
     Dosage: NASOGASTRIC TUBE
     Route: 048

REACTIONS (1)
  - DEVICE OCCLUSION [None]
